FAERS Safety Report 4842518-3 (Version None)
Quarter: 2005Q4

REPORT INFORMATION
  Report Type: 
  Country: None (occurrence: None)
  Receive Date: 20051129
  Receipt Date: 20051116
  Transmission Date: 20060501
  Serious: Yes (Hospitalization)
  Sender: FDA-Public Use
  Company Number: USA040977469

PATIENT
  Age: 76 Year
  Sex: Female

DRUGS (5)
  1. EVISTA [Suspect]
     Indication: OSTEOPOROSIS
     Dates: start: 20031001, end: 20041001
  2. FORTEO [Suspect]
     Indication: BONE DISORDER
     Dosage: 20 UG, DAILY (1D),
     Dates: start: 20041001, end: 20051001
  3. FOSAMAX [Concomitant]
  4. VIOXX [Concomitant]
  5. FORTEO PEN (FORTEO PEN) [Concomitant]

REACTIONS (10)
  - BONE DENSITY DECREASED [None]
  - CONDITION AGGRAVATED [None]
  - ECONOMIC PROBLEM [None]
  - GROIN PAIN [None]
  - HIATUS HERNIA [None]
  - HOT FLUSH [None]
  - MUSCULOSKELETAL PAIN [None]
  - PAIN IN EXTREMITY [None]
  - PHARMACEUTICAL PRODUCT COMPLAINT [None]
  - SCOLIOSIS [None]
